FAERS Safety Report 23561229 (Version 1)
Quarter: 2024Q1

REPORT INFORMATION
  Report Type: Report from Study
  Country: TR (occurrence: TR)
  Receive Date: 20240224
  Receipt Date: 20240224
  Transmission Date: 20240410
  Serious: Yes (Other)
  Sender: FDA-Public Use
  Company Number: TR-Long Grove-000037

PATIENT
  Sex: Male

DRUGS (2)
  1. CALCITRIOL [Suspect]
     Active Substance: CALCITRIOL
     Indication: Hypophosphataemic osteomalacia
     Dosage: 18 NG/KG/DAY
  2. PHOSPHORUS [Suspect]
     Active Substance: PHOSPHORUS
     Indication: Hypophosphataemic osteomalacia

REACTIONS (1)
  - Arterial stenosis [Not Recovered/Not Resolved]
